FAERS Safety Report 8791250 (Version 2)
Quarter: 2012Q4

REPORT INFORMATION
  Report Type: Spontaneous
  Country: DE (occurrence: None)
  Receive Date: 20120912
  Receipt Date: 20121005
  Transmission Date: 20130627
  Serious: Yes (Other)
  Sender: FDA-Public Use
  Company Number: SP06058

PATIENT
  Sex: Female

DRUGS (10)
  1. MOVIPREP [Suspect]
     Indication: BOWEL PREPARATION
     Dosage: (2 lit), Oral
     Route: 048
     Dates: start: 20120829, end: 20120829
  2. LEVOTHYROXINE [Concomitant]
  3. PREDNISOLONE [Concomitant]
  4. BISOPROLOL [Concomitant]
  5. AMLODIPINE [Concomitant]
  6. HYDROCHLOROTHIAZIDE [Concomitant]
  7. OPIPRAMOL [Concomitant]
  8. QUENSYL [Concomitant]
  9. ASPIRIN [Concomitant]
  10. PANTOPRAZOL [Concomitant]

REACTIONS (8)
  - Abdominal distension [None]
  - Palpitations [None]
  - Retching [None]
  - Blood pressure increased [None]
  - Malaise [None]
  - Insomnia [None]
  - Hypokalaemia [None]
  - Dizziness [None]
